FAERS Safety Report 4796456-5 (Version None)
Quarter: 2005Q4

REPORT INFORMATION
  Report Type: 
  Country: None (occurrence: None)
  Receive Date: 20051007
  Receipt Date: 20050930
  Transmission Date: 20060501
  Serious: Yes (Other)
  Sender: FDA-Public Use
  Company Number: 2005S1000291

PATIENT
  Age: 24 Year
  Sex: Female

DRUGS (2)
  1. ACITRETIN (ACITRETIN) [Suspect]
     Dosage: QD;PO
     Route: 048
     Dates: start: 20030101, end: 20050901
  2. TRIQUILAR [Concomitant]

REACTIONS (2)
  - DRUG EXPOSURE DURING PREGNANCY [None]
  - PREGNANCY [None]
